FAERS Safety Report 12108623 (Version 1)
Quarter: 2016Q1

REPORT INFORMATION
  Report Type: Spontaneous
  Country: US (occurrence: US)
  Receive Date: 20160224
  Receipt Date: 20160224
  Transmission Date: 20160526
  Serious: Yes (Other)
  Sender: FDA-Public Use
  Company Number: US-ROCHE-1712867

PATIENT
  Age: 57 Year
  Sex: Female

DRUGS (2)
  1. KLONOPIN [Suspect]
     Active Substance: CLONAZEPAM
     Indication: PRODUCT USED FOR UNKNOWN INDICATION
     Route: 065
  2. TRAZODONE [Concomitant]
     Active Substance: TRAZODONE HYDROCHLORIDE
     Dosage: AS NEEDED
     Route: 065

REACTIONS (6)
  - Neoplasm recurrence [Unknown]
  - Breast cancer [Unknown]
  - Abdominal pain [Unknown]
  - Uterine cancer [Unknown]
  - Metastasis [Unknown]
  - Lung neoplasm [Unknown]

NARRATIVE: CASE EVENT DATE: 200012
